FAERS Safety Report 5800613-6 (Version None)
Quarter: 2008Q3

REPORT INFORMATION
  Report Type: 
  Country: None (occurrence: None)
  Receive Date: 20080701
  Receipt Date: 20080620
  Transmission Date: 20090109
  Serious: Yes (Hospitalization, Other)
  Sender: FDA-Public Use
  Company Number: 062-21880-07120095

PATIENT
  Age: 51 Year
  Sex: Male
  Weight: 60 kg

DRUGS (7)
  1. REVLIMID [Suspect]
     Indication: PLASMACYTOMA
     Dosage: 25 MG, ORAL; REDUCED DOSE, ORAL
     Route: 048
     Dates: start: 20071102, end: 20071122
  2. REVLIMID [Suspect]
     Indication: PLASMACYTOMA
     Dosage: 25 MG, ORAL; REDUCED DOSE, ORAL
     Route: 048
     Dates: start: 20071204, end: 20080214
  3. ALLOPURINOL [Concomitant]
  4. OMEPRAZOLE [Concomitant]
  5. TILIDEN (HEXACHLOROPHENE) [Concomitant]
  6. METAMIZOLE (METAMIZOLE) (DROPS) [Concomitant]
  7. ENOXAPARIN SODIUM [Concomitant]

REACTIONS (13)
  - ANAEMIA [None]
  - BLOOD POTASSIUM DECREASED [None]
  - BODY TEMPERATURE DECREASED [None]
  - BONE PAIN [None]
  - CHOLELITHIASIS [None]
  - ENDOSCOPIC RETROGRADE CHOLANGIOPANCREATOGRAPHY ABNORMAL [None]
  - HEPATIC STEATOSIS [None]
  - HEPATOTOXICITY [None]
  - LUNG DISORDER [None]
  - LYMPHOCYTE PERCENTAGE DECREASED [None]
  - NEUTROPHIL PERCENTAGE INCREASED [None]
  - SPINAL CORD COMPRESSION [None]
  - WHITE BLOOD CELL COUNT DECREASED [None]
